FAERS Safety Report 4596007-4 (Version None)
Quarter: 2005Q1

REPORT INFORMATION
  Report Type: 
  Country: None (occurrence: None)
  Receive Date: 20050302
  Receipt Date: 20050221
  Transmission Date: 20050727
  Serious: Yes (Death)
  Sender: FDA-Public Use
  Company Number: JP-JNJFOC-20030707391

PATIENT
  Sex: Female

DRUGS (3)
  1. FENTANYL [Suspect]
     Route: 062
     Dates: start: 20030721, end: 20030727
  2. FENTANYL [Suspect]
     Indication: CANCER PAIN
     Route: 062
     Dates: start: 20030721, end: 20030727
  3. MORPHINE HYDROCHLORIDE [Concomitant]

REACTIONS (2)
  - GASTRIC CANCER [None]
  - MALIGNANT NEOPLASM PROGRESSION [None]
